FAERS Safety Report 6909041-3 (Version None)
Quarter: 2010Q3

REPORT INFORMATION
  Report Type: 
  Country: None (occurrence: None)
  Receive Date: 20100805
  Receipt Date: 20100802
  Transmission Date: 20110219
  Serious: Yes (Hospitalization)
  Sender: FDA-Public Use
  Company Number: US-BRISTOL-MYERS SQUIBB COMPANY-15079296

PATIENT
  Age: 66 Year
  Sex: Female
  Weight: 75 kg

DRUGS (7)
  1. CARBOPLATIN [Suspect]
     Indication: NON-SMALL CELL LUNG CANCER
     Dosage: INTERRUPTED ON 12APR10;6DF:6AUC DISCONT ON 19APR10
     Route: 042
     Dates: start: 20090917, end: 20091118
  2. ALIMTA [Suspect]
     Indication: NON-SMALL CELL LUNG CANCER
     Dosage: 17SP09-29MR10(194D)(LAST DOSE-29MR10) INTP 13APR10,194D DISCON 19AP10 LAST DOSE(IND PHASE)18NV09
     Route: 042
     Dates: start: 20090917, end: 20100329
  3. BEVACIZUMAB [Suspect]
     Indication: NON-SMALL CELL LUNG CANCER
     Dosage: 17SEP09-29MAR10(194D)(LAST DOSE-29MAR10) INPT ON 12APR10.THERAPY HELD 13APR10 DISCONT ON 19AP10
     Route: 042
     Dates: start: 20090917, end: 20100329
  4. IBUPROFEN (ADVIL) [Concomitant]
     Indication: PAIN
  5. TUSSIONEX [Concomitant]
     Indication: COUGH
     Dates: start: 20090910
  6. VITAMIN B-12 [Concomitant]
     Dates: start: 20090910, end: 20100304
  7. FOLIC ACID [Concomitant]
     Dates: start: 20090910, end: 20100408

REACTIONS (1)
  - DEEP VEIN THROMBOSIS [None]
